FAERS Safety Report 15297749 (Version 3)
Quarter: 2019Q1

REPORT INFORMATION
  Report Type: Spontaneous
  Country: US (occurrence: US)
  Receive Date: 20180820
  Receipt Date: 20190221
  Transmission Date: 20190417
  Serious: Yes (Other)
  Sender: FDA-Public Use
  Company Number: US-PFIZER INC-2018329012

PATIENT
  Age: 66 Year
  Sex: Female
  Weight: 53.52 kg

DRUGS (8)
  1. TIKOSYN [Suspect]
     Active Substance: DOFETILIDE
     Dosage: 500 MG, 2X/DAY
     Dates: start: 20180717, end: 2018
  2. PROPAFENONE. [Concomitant]
     Active Substance: PROPAFENONE
     Indication: ATRIAL FIBRILLATION
     Dosage: 300 MG, AS NEEDED
     Dates: start: 201808
  3. TIKOSYN [Suspect]
     Active Substance: DOFETILIDE
     Indication: ATRIAL FIBRILLATION
     Dosage: 500 MG, 2X/DAY
     Route: 048
     Dates: start: 20180719, end: 2018
  4. TIKOSYN [Suspect]
     Active Substance: DOFETILIDE
     Dosage: 250 MG, 2X/DAY
     Dates: start: 2018, end: 20180814
  5. TIKOSYN [Suspect]
     Active Substance: DOFETILIDE
     Dosage: 250 MG, 2X/DAY
     Route: 048
     Dates: start: 2018, end: 20180812
  6. TIKOSYN [Suspect]
     Active Substance: DOFETILIDE
     Dosage: 200 MG, UNK
     Dates: end: 20180812
  7. WARFARIN [Concomitant]
     Active Substance: WARFARIN
     Indication: ATRIAL FIBRILLATION
     Dosage: UNK UNK, DAILY (5-7 MG)
     Dates: start: 20180717
  8. NATURE-THROID [Concomitant]
     Active Substance: THYROID, PORCINE
     Dosage: UNK UNK, DAILY (16 1/2 MG 1X DAILY)

REACTIONS (7)
  - Dyspnoea [Recovered/Resolved]
  - Condition aggravated [Recovered/Resolved]
  - Rales [Recovered/Resolved]
  - Pleurisy [Recovered/Resolved]
  - Hyperhidrosis [Recovered/Resolved]
  - Malaise [Unknown]
  - Supraventricular extrasystoles [Recovered/Resolved]

NARRATIVE: CASE EVENT DATE: 2018
